FAERS Safety Report 9893831 (Version 1)
Quarter: 2014Q1

REPORT INFORMATION
  Report Type: Spontaneous
  Country: US (occurrence: US)
  Receive Date: 20140213
  Receipt Date: 20140213
  Transmission Date: 20141002
  Serious: Yes (Other)
  Sender: FDA-Public Use
  Company Number: US-PFIZER INC-2014040944

PATIENT
  Age: 77 Year
  Sex: Male
  Weight: 70.3 kg

DRUGS (8)
  1. LYRICA [Suspect]
     Indication: HYPOAESTHESIA
     Dosage: 50 MG, 3X/DAY
     Route: 048
     Dates: start: 2013
  2. LYRICA [Suspect]
     Indication: NEUROPATHY PERIPHERAL
  3. LYRICA [Suspect]
     Indication: PARAESTHESIA
  4. LYRICA [Suspect]
     Indication: GAIT DISTURBANCE
  5. METHOTREXATE [Concomitant]
     Dosage: 2.5 MG, WEEKLY
  6. FOLIC ACID [Concomitant]
     Dosage: 1 MG, 1X/DAY
  7. PREDNISONE [Concomitant]
     Dosage: 5 MG, 1X/DAY
  8. GABAPENTIN [Concomitant]
     Dosage: 800 MG, 3X/DAY

REACTIONS (1)
  - Intervertebral disc protrusion [Unknown]
